FAERS Safety Report 23989419 (Version 2)
Quarter: 2025Q2

REPORT INFORMATION
  Report Type: Spontaneous
  Country: US (occurrence: US)
  Receive Date: 20240619
  Receipt Date: 20250621
  Transmission Date: 20250716
  Serious: Yes (Other)
  Sender: AUROBINDO
  Company Number: US-MLMSERVICE-20240408-PI009134-00057-1

PATIENT
  Age: 57 Year
  Sex: Female

DRUGS (2)
  1. ATORVASTATIN [Suspect]
     Active Substance: ATORVASTATIN
     Indication: Metabolic syndrome
     Route: 065
  2. JARDIANCE [Suspect]
     Active Substance: EMPAGLIFLOZIN
     Indication: Metabolic syndrome
     Route: 065

REACTIONS (2)
  - Glomerulonephritis [Unknown]
  - Henoch-Schonlein purpura [Unknown]
